FAERS Safety Report 15742935 (Version 1)
Quarter: 2018Q4

REPORT INFORMATION
  Report Type: Spontaneous
  Country: DK (occurrence: DK)
  Receive Date: 20181220
  Receipt Date: 20181220
  Transmission Date: 20190205
  Serious: Yes (Death, Hospitalization)
  Sender: FDA-Public Use
  Company Number: DK-STRIDES ARCOLAB LIMITED-2018SP010628

PATIENT
  Age: 61 Year
  Sex: Female

DRUGS (4)
  1. IBUPROFEN. [Suspect]
     Active Substance: IBUPROFEN
     Indication: PRODUCT USED FOR UNKNOWN INDICATION
     Dosage: 20 G, UNKNOWN
     Route: 065
  2. ZOLPIDEM [Suspect]
     Active Substance: ZOLPIDEM\ZOLPIDEM TARTRATE
     Indication: PRODUCT USED FOR UNKNOWN INDICATION
     Dosage: 200 G, UNKNOWN
     Route: 065
  3. VERAPAMIL [Suspect]
     Active Substance: VERAPAMIL HYDROCHLORIDE
     Indication: PRODUCT USED FOR UNKNOWN INDICATION
     Dosage: 6000 MG, UNKNOWN
     Route: 048
  4. RAMIPRIL. [Suspect]
     Active Substance: RAMIPRIL
     Indication: PRODUCT USED FOR UNKNOWN INDICATION
     Dosage: 150 MG, UNKNOWN
     Route: 065

REACTIONS (11)
  - Pallor [Unknown]
  - Cardiotoxicity [Fatal]
  - Electrocardiogram QRS complex prolonged [Unknown]
  - Anuria [Unknown]
  - Toxicity to various agents [Fatal]
  - Nasopharyngitis [Unknown]
  - Speech disorder [Unknown]
  - Suicide attempt [Fatal]
  - Hyperhidrosis [Unknown]
  - Intentional overdose [Fatal]
  - Loss of consciousness [Unknown]
